FAERS Safety Report 4841301-2 (Version None)
Quarter: 2005Q4

REPORT INFORMATION
  Report Type: 
  Country: None (occurrence: None)
  Receive Date: 20051130
  Receipt Date: 20051129
  Transmission Date: 20060501
  Serious: Yes (Other)
  Sender: FDA-Public Use
  Company Number: 200514389EU

PATIENT
  Age: 51 Year
  Sex: Female

DRUGS (5)
  1. NICODERM CQ [Suspect]
     Dosage: 1PAT PER DAY
     Route: 062
     Dates: start: 20051001
  2. NICODERM CQ [Suspect]
     Route: 062
     Dates: end: 20051001
  3. CLONAZEPAM [Concomitant]
     Indication: DEPRESSION
     Dosage: 2TAB PER DAY
     Route: 048
  4. FLUOXETINE [Concomitant]
     Indication: DEPRESSION
     Dosage: 3TAB PER DAY
     Route: 048
  5. LITHIUM [Concomitant]
     Indication: DEPRESSION

REACTIONS (5)
  - DRUG INEFFECTIVE [None]
  - MEDICATION ERROR [None]
  - OVERDOSE [None]
  - PRURITUS [None]
  - SUICIDAL IDEATION [None]
